FAERS Safety Report 14302769 (Version 3)
Quarter: 2019Q4

REPORT INFORMATION
  Report Type: Spontaneous
  Country: US (occurrence: US)
  Receive Date: 20171219
  Receipt Date: 20191114
  Transmission Date: 20200122
  Serious: Yes (Hospitalization)
  Sender: FDA-Public Use
  Company Number: US-SA-2017SA237241

PATIENT
  Age: 84 Year
  Sex: Male

DRUGS (3)
  1. PRALUENT [Suspect]
     Active Substance: ALIROCUMAB
     Dosage: 75 MG
     Route: 058
  2. PRALUENT [Suspect]
     Active Substance: ALIROCUMAB
     Dosage: 75 MG
     Route: 058
     Dates: start: 201702, end: 201709
  3. PRALUENT [Suspect]
     Active Substance: ALIROCUMAB
     Dosage: 150 MG
     Route: 058
     Dates: start: 20171207, end: 20171207

REACTIONS (5)
  - Hospitalisation [Unknown]
  - Malaise [Unknown]
  - Pruritus [Unknown]
  - Incorrect dose administered [Unknown]
  - Nausea [Unknown]

NARRATIVE: CASE EVENT DATE: 201710
